FAERS Safety Report 7672591-9 (Version None)
Quarter: 2011Q3

REPORT INFORMATION
  Report Type: 
  Country: None (occurrence: None)
  Receive Date: 20110809
  Receipt Date: 20110804
  Transmission Date: 20111222
  Serious: Yes (Life-Threatening, Hospitalization)
  Sender: FDA-Public Use
  Company Number: PL-PFIZER INC-2011164243

PATIENT
  Age: 65 Year
  Sex: Female

DRUGS (5)
  1. VIVACOR (CARVEDILOL) [Concomitant]
     Dosage: 6.25 MG, 2X/DAY
  2. ACENOCUMAROL [Interacting]
     Dosage: 4 MG, UNK
  3. POLOCARD [Concomitant]
     Dosage: 75 MG, 1X/DAY
  4. INSPRA [Suspect]
     Indication: ATRIAL FIBRILLATION
     Dosage: 25 MG, 1X/DAY
     Dates: start: 20100729
  5. BEMECOR [Concomitant]
     Dosage: UNK

REACTIONS (11)
  - INTERNATIONAL NORMALISED RATIO INCREASED [None]
  - DYSPNOEA [None]
  - DECREASED APPETITE [None]
  - DRUG INTERACTION [None]
  - ABDOMINAL DISCOMFORT [None]
  - ASTHENIA [None]
  - OEDEMA PERIPHERAL [None]
  - INSOMNIA [None]
  - DRY MOUTH [None]
  - PAIN IN EXTREMITY [None]
  - NERVOUSNESS [None]
